FAERS Safety Report 6292762-6 (Version None)
Quarter: 2009Q3

REPORT INFORMATION
  Report Type: 
  Country: None (occurrence: None)
  Receive Date: 20090731
  Receipt Date: 20090723
  Transmission Date: 20100115
  Serious: Yes (Other)
  Sender: FDA-Public Use
  Company Number: B0585629A

PATIENT
  Age: 23 Year
  Sex: Male

DRUGS (8)
  1. RETROVIR [Suspect]
     Indication: HIV TEST POSITIVE
     Route: 048
     Dates: start: 20081101, end: 20090101
  2. ABACAVIR SULFATE/LAMIVUDINE [Suspect]
     Indication: ANTIRETROVIRAL THERAPY
     Route: 065
     Dates: start: 20080901
  3. VIREAD [Concomitant]
     Indication: HIV TEST POSITIVE
     Route: 048
     Dates: start: 20081101
  4. EFAVIRENZ [Concomitant]
  5. STEROID [Concomitant]
  6. SULFAMETHOXAZOLE AND TRIMETHOPRIM [Concomitant]
  7. ATAZANAVIR SULFATE [Concomitant]
  8. ZIDOVUDINE [Concomitant]
     Dates: start: 20081101

REACTIONS (5)
  - ANAEMIA [None]
  - CRYPTOCOCCOSIS [None]
  - DECREASED APPETITE [None]
  - DRUG RESISTANCE [None]
  - ENCEPHALITIS [None]
